FAERS Safety Report 24593312 (Version 1)
Quarter: 2024Q4

REPORT INFORMATION
  Report Type: Spontaneous
  Country: US (occurrence: US)
  Receive Date: 20241108
  Receipt Date: 20241108
  Transmission Date: 20250114
  Serious: Yes (Other)
  Sender: AMGEN
  Company Number: US-AMGEN-USASP2024217174

PATIENT
  Sex: Female

DRUGS (2)
  1. TEPEZZA [Suspect]
     Active Substance: TEPROTUMUMAB-TRBW
     Indication: Product used for unknown indication
     Dosage: UNK
     Route: 065
     Dates: start: 20200604, end: 20201018
  2. PREDNISONE [Suspect]
     Active Substance: PREDNISONE
     Indication: Visual impairment
     Dosage: UNK
     Route: 065

REACTIONS (1)
  - Thyroid cancer [Unknown]
